FAERS Safety Report 6349023-6 (Version None)
Quarter: 2009Q3

REPORT INFORMATION
  Report Type: 
  Country: None (occurrence: None)
  Receive Date: 20090908
  Receipt Date: 20090831
  Transmission Date: 20100115
  Serious: Yes (Death, Other)
  Sender: FDA-Public Use
  Company Number: CLOF-1000632

PATIENT
  Age: 10 Year
  Sex: Male

DRUGS (2)
  1. CLOLAR [Suspect]
     Indication: ACUTE LYMPHOCYTIC LEUKAEMIA
     Dosage: 58 MG, QDX5, INTRAVENOUS
     Route: 042
     Dates: start: 20090501, end: 20090505
  2. CLOLAR [Suspect]
     Indication: ACUTE LYMPHOCYTIC LEUKAEMIA
     Dosage: 57 MG, QDX5, INTRAVENOUS
     Route: 042
     Dates: start: 20090519, end: 20090523

REACTIONS (6)
  - CEREBRAL TOXOPLASMOSIS [None]
  - DISEASE PROGRESSION [None]
  - HAEMATOCRIT DECREASED [None]
  - HAEMOGLOBIN DECREASED [None]
  - PLATELET COUNT DECREASED [None]
  - PRECURSOR B-LYMPHOBLASTIC LYMPHOMA RECURRENT [None]
